FAERS Safety Report 13289608 (Version 1)
Quarter: 2017Q1

REPORT INFORMATION
  Report Type: Spontaneous
  Country: CH (occurrence: CH)
  Receive Date: 20170302
  Receipt Date: 20170302
  Transmission Date: 20170428
  Serious: Yes (Hospitalization)
  Sender: FDA-Public Use
  Company Number: PHHY2017CH029732

PATIENT
  Age: 78 Year
  Sex: Male

DRUGS (2)
  1. SANDIMMUN NEORAL [Suspect]
     Active Substance: CYCLOSPORINE
     Dosage: 300 MG, QD
     Route: 065
  2. SANDIMMUN NEORAL [Suspect]
     Active Substance: CYCLOSPORINE
     Indication: PRODUCT USED FOR UNKNOWN INDICATION
     Dosage: 400 MG, QD (2X200 MG )
     Route: 065

REACTIONS (11)
  - Eyelid oedema [Recovered/Resolved]
  - Hand deformity [Unknown]
  - Gait disturbance [Unknown]
  - Oedema peripheral [Not Recovered/Not Resolved]
  - Pain [Unknown]
  - Arthralgia [Unknown]
  - Hypokinesia [Unknown]
  - Weight increased [Unknown]
  - Anuria [Unknown]
  - Intervertebral disc protrusion [Unknown]
  - Headache [Recovered/Resolved]
